FAERS Safety Report 7028300-X (Version None)
Quarter: 2010Q4

REPORT INFORMATION
  Report Type: 
  Country: None (occurrence: None)
  Receive Date: 20101005
  Receipt Date: 20100927
  Transmission Date: 20110411
  Serious: Yes (Other)
  Sender: FDA-Public Use
  Company Number: ZA-JNJFOC-20100809198

PATIENT
  Sex: Male
  Weight: 96 kg

DRUGS (3)
  1. CAELYX [Suspect]
     Indication: MULTIPLE MYELOMA
     Dosage: 26 CYCLES
     Route: 042
  2. VELCADE [Suspect]
     Indication: MULTIPLE MYELOMA
     Route: 042
  3. ZOMETA [Concomitant]
     Indication: MULTIPLE MYELOMA
     Route: 042

REACTIONS (1)
  - INTERSTITIAL LUNG DISEASE [None]
